FAERS Safety Report 7369244-3 (Version None)
Quarter: 2011Q1

REPORT INFORMATION
  Report Type: 
  Country: None (occurrence: None)
  Receive Date: 20110314
  Receipt Date: 20110223
  Transmission Date: 20110831
  Serious: Yes (Hospitalization)
  Sender: FDA-Public Use
  Company Number: A-US2011-45512

PATIENT
  Age: 37 Year
  Sex: Female

DRUGS (4)
  1. ASPIRIN [Concomitant]
  2. TADALAFIL [Concomitant]
  3. TRACLEER [Suspect]
     Indication: PULMONARY ARTERIAL HYPERTENSION
     Dosage: ORAL
     Route: 048
     Dates: start: 20060918
  4. EPOPROSTENOL SODIUM [Suspect]
     Indication: PULMONARY ARTERIAL HYPERTENSION
     Dosage: 24.5 NG/KG, PER MIN, INTRAVENOUS
     Route: 042
     Dates: start: 20110101

REACTIONS (9)
  - NAUSEA [None]
  - FAECES DISCOLOURED [None]
  - CHILLS [None]
  - FLUSHING [None]
  - SKIN DISORDER [None]
  - PYREXIA [None]
  - PAIN IN JAW [None]
  - ABDOMINAL DISCOMFORT [None]
  - ASTHENIA [None]
